FAERS Safety Report 4954493-1 (Version None)
Quarter: 2006Q1

REPORT INFORMATION
  Report Type: 
  Country: None (occurrence: None)
  Receive Date: 20060321
  Receipt Date: 20060313
  Transmission Date: 20060701
  Serious: Yes (Hospitalization)
  Sender: FDA-Public Use
  Company Number: 051129-0001103

PATIENT
  Age: 14 Year
  Sex: Male

DRUGS (13)
  1. COSMEGAN (DACTINOMYCIN FOR INJECTION) [Suspect]
     Indication: RHABDOMYOSARCOMA
     Dosage: SEE IMAGE
     Route: 042
     Dates: start: 20050528, end: 20050601
  2. COSMEGAN (DACTINOMYCIN FOR INJECTION) [Suspect]
     Indication: RHABDOMYOSARCOMA
     Dosage: SEE IMAGE
     Route: 042
     Dates: start: 20050725, end: 20050727
  3. ETOPOSIDE [Suspect]
     Indication: RHABDOMYOSARCOMA
     Dosage: SEE IMAGE
     Route: 042
     Dates: start: 20050528, end: 20050601
  4. ETOPOSIDE [Suspect]
     Indication: RHABDOMYOSARCOMA
     Dosage: SEE IMAGE
     Route: 042
     Dates: start: 20050728, end: 20050729
  5. IFOSFAMIDE [Suspect]
     Indication: RHABDOMYOSARCOMA
     Dosage: SEE IMAGE
     Route: 042
     Dates: start: 20050528, end: 20050601
  6. IFOSFAMIDE [Suspect]
     Indication: RHABDOMYOSARCOMA
     Dosage: SEE IMAGE
     Route: 042
     Dates: start: 20050725, end: 20050729
  7. VINCRISTINE [Suspect]
     Dosage: SEE IMAGE
     Route: 042
     Dates: start: 20050604, end: 20050604
  8. VINCRISTINE [Suspect]
     Dosage: SEE IMAGE
     Route: 042
     Dates: start: 20050611, end: 20050611
  9. VINCRISTINE [Suspect]
     Dosage: SEE IMAGE
     Route: 042
     Dates: start: 20050801, end: 20050801
  10. VINCRISTINE [Suspect]
     Dosage: SEE IMAGE
     Route: 042
     Dates: start: 20050808, end: 20050808
  11. CISPLATIN [Concomitant]
  12. CYCLOPHOSPHAMIDE [Concomitant]
  13. PIRARUBICIN [Concomitant]

REACTIONS (3)
  - APHTHOUS STOMATITIS [None]
  - GLOSSITIS [None]
  - TRISMUS [None]
